FAERS Safety Report 7805502-3 (Version None)
Quarter: 2011Q4

REPORT INFORMATION
  Report Type: 
  Country: None (occurrence: None)
  Receive Date: 20111010
  Receipt Date: 20111003
  Transmission Date: 20120403
  Serious: Yes (Hospitalization, Disabling, Other)
  Sender: FDA-Public Use
  Company Number: PHEH2011US03638

PATIENT
  Sex: Female
  Weight: 74.82 kg

DRUGS (8)
  1. NEURONTIN [Concomitant]
     Indication: MULTIPLE SCLEROSIS
     Dosage: 600 (UNKNOWN UNITS), ONCE DAILY
     Route: 048
  2. LYRICA [Concomitant]
     Dosage: UNK UKN, UNK
  3. NITROFURANTOIN [Concomitant]
     Dosage: UNK UKN, UNK
  4. TOPRAL [Concomitant]
     Dosage: UNK UKN, UNK
  5. GILENYA [Suspect]
     Indication: MULTIPLE SCLEROSIS
     Dosage: 0.5 MG, DAILY
     Route: 048
     Dates: start: 20110903, end: 20110911
  6. BACLOFEN [Concomitant]
     Indication: MULTIPLE SCLEROSIS
     Dosage: 40 (UNITS UNKNOWN), ONCE DAILY
     Route: 048
  7. FAMPRIDINE [Concomitant]
     Dosage: UNK UKN, UNK
  8. SERTRALINE HYDROCHLORIDE [Concomitant]
     Dosage: UNK UKN, UNK

REACTIONS (5)
  - PARAPLEGIA [None]
  - HYPOAESTHESIA [None]
  - MUSCLE TIGHTNESS [None]
  - MUSCULAR WEAKNESS [None]
  - ABASIA [None]
